FAERS Safety Report 21485672 (Version 2)
Quarter: 2022Q4

REPORT INFORMATION
  Report Type: Spontaneous
  Country: US (occurrence: US)
  Receive Date: 20221020
  Receipt Date: 20221102
  Transmission Date: 20230113
  Serious: Yes (Hospitalization, Other)
  Sender: FDA-Public Use
  Company Number: US-GSKCCFUS-Case-01530357_AE-86731

PATIENT

DRUGS (1)
  1. TRELEGY ELLIPTA [Suspect]
     Active Substance: FLUTICASONE FUROATE\UMECLIDINIUM BROMIDE\VILANTEROL TRIFENATATE
     Indication: Product used for unknown indication
     Dosage: UNK

REACTIONS (6)
  - Myocardial infarction [Unknown]
  - Hospitalisation [Unknown]
  - Enzyme activity decreased [Unknown]
  - Respiratory tract congestion [Unknown]
  - Fear [Unknown]
  - Depression [Unknown]
